FAERS Safety Report 9553896 (Version 1)
Quarter: 2013Q3

REPORT INFORMATION
  Report Type: Spontaneous
  Country: US (occurrence: None)
  Receive Date: 20130924
  Receipt Date: 20130924
  Transmission Date: 20140515
  Serious: Yes (Disabling, Other)
  Sender: FDA-Public Use
  Company Number: None

PATIENT
  Sex: Male

DRUGS (2)
  1. LEVAQUIN [Suspect]
     Indication: SINUSITIS
     Dosage: 10 PILLS 1 PER DAY, 1 PER DAY, MOUTH
     Dates: start: 20130102, end: 20130105
  2. EDARBYCLOR [Suspect]
     Dosage: 40-12.5 MG 1 A DAY

REACTIONS (7)
  - Respiratory arrest [None]
  - Panic attack [None]
  - Dyspnoea [None]
  - Fear of death [None]
  - Confusional state [None]
  - Fear [None]
  - Anxiety [None]
